FAERS Safety Report 7118458-6 (Version None)
Quarter: 2010Q4

REPORT INFORMATION
  Report Type: 
  Country: None (occurrence: None)
  Receive Date: 20101021
  Receipt Date: 20100119
  Transmission Date: 20110411
  Serious: Yes (Other)
  Sender: FDA-Public Use
  Company Number: 2010BH001212

PATIENT
  Age: 35 Year
  Sex: Female
  Weight: 68 kg

DRUGS (4)
  1. GAMMAGARD LIQUID [Suspect]
     Indication: DERMATOMYOSITIS
     Dosage: 80 GM;ONCE;IV
     Route: 042
     Dates: start: 20100118, end: 20100118
  2. GAMMAGARD LIQUID [Suspect]
     Indication: OFF LABEL USE
     Dosage: 80 GM;ONCE;IV
     Route: 042
     Dates: start: 20100118, end: 20100118
  3. PREDNISONE [Concomitant]
  4. IMMUNOGLOBULIN HUMAN NORMAL [Concomitant]

REACTIONS (2)
  - HEADACHE [None]
  - MENINGITIS ASEPTIC [None]
